FAERS Safety Report 7456153-4 (Version None)
Quarter: 2011Q2

REPORT INFORMATION
  Report Type: 
  Country: None (occurrence: None)
  Receive Date: 20110503
  Receipt Date: 20091122
  Transmission Date: 20111010
  Serious: Yes (Hospitalization, Other)
  Sender: FDA-Public Use
  Company Number: US-BAYER-200940082NA

PATIENT
  Age: 68 Year
  Sex: Male
  Weight: 95.238 kg

DRUGS (30)
  1. PROTAMINE SULFATE [Concomitant]
     Dosage: UNK
     Dates: start: 20060525
  2. VECURONIUM BROMIDE [Concomitant]
     Dosage: 10/6 MG
     Route: 042
     Dates: start: 20060525
  3. RED BLOOD CELLS [Concomitant]
     Dosage: 1 U, PERIOPERATIVELY
     Route: 042
     Dates: start: 20060525, end: 20060525
  4. TRASYLOL [Suspect]
     Dosage: 200 ML (PRIME)
     Route: 042
     Dates: start: 20060525, end: 20060525
  5. MAGNESIUM SULFATE [Concomitant]
     Dosage: 2 G, UNK
     Dates: start: 20060525, end: 20060525
  6. NEO-SYNEPHRINOL [Concomitant]
     Dosage: UNK
     Route: 042
     Dates: start: 20060525
  7. REGULAR INSULIN [Concomitant]
     Dosage: SLIDING SCALE
     Route: 058
  8. HEPARIN [Concomitant]
     Dosage: 10,000 UNITS, NK
     Dates: start: 20060525, end: 20060525
  9. MANNITOL [Concomitant]
     Dosage: 25 G, UNK
     Dates: start: 20060525, end: 20060525
  10. VERSED [Concomitant]
     Dosage: 15 MG, UNK
     Route: 042
     Dates: start: 20060525
  11. RED BLOOD CELLS [Concomitant]
     Dosage: 1 U, POSTOPERATIVELY
     Route: 042
     Dates: start: 20060525, end: 20060525
  12. FRESH FROZEN PLASMA [Concomitant]
     Dosage: 2 U, PERIOPERATIVELY
     Route: 042
     Dates: start: 20060525, end: 20060525
  13. LISINOPRIL [Concomitant]
     Dosage: 5 MG, QD
     Route: 048
  14. INSULIN [Concomitant]
     Dosage: UNK
     Dates: start: 20060525
  15. OMNIPAQUE 140 [Concomitant]
     Dosage: 105 ML, UNK
     Route: 042
     Dates: start: 20060521
  16. SODIUM BICARBONATE [Concomitant]
     Dosage: 25 MEQ, UNK
     Dates: start: 20060525, end: 20060525
  17. PHENYLEPHRINE HCL [Concomitant]
     Dosage: 5 MG, UNK
     Dates: start: 20060525, end: 20060525
  18. ANCEF [Concomitant]
     Dosage: 2 G, UNK
     Route: 042
     Dates: start: 20060525
  19. FENTANYL [Concomitant]
     Dosage: 60 ML, UNK
     Route: 042
     Dates: start: 20060525
  20. TRASYLOL [Suspect]
     Indication: CORONARY ARTERY BYPASS
     Dosage: 1 ML, ONCE (INITIAL)
     Route: 042
     Dates: start: 20060525, end: 20060525
  21. TRASYLOL [Suspect]
     Dosage: 200 ML (LOADING)
     Route: 042
     Dates: start: 20060525, end: 20060525
  22. TRASYLOL [Suspect]
     Dosage: 50 ML/HR (INFUSION)
     Route: 042
     Dates: start: 20060525, end: 20060525
  23. PAPAVERINE [Concomitant]
     Dosage: UNK
     Dates: start: 20060525
  24. FRESH FROZEN PLASMA [Concomitant]
     Dosage: 1 U, POSTOPERATIVELY
     Route: 042
     Dates: start: 20060525, end: 20060525
  25. METOPROLOL SUCCINATE [Concomitant]
     Dosage: 100 MG, BID
  26. ALBUMIN (HUMAN) [Concomitant]
     Dosage: 15 G, UNK
     Dates: start: 20060525, end: 20060525
  27. ASPIRIN [Concomitant]
     Dosage: 325 MG, QD
     Route: 048
  28. DOPAMINE HCL [Concomitant]
     Dosage: 3 MCG/KG/MIN
     Route: 042
     Dates: start: 20060525, end: 20060525
  29. ETOMIDATE [Concomitant]
     Dosage: UNK
     Route: 042
     Dates: start: 20060525
  30. PLATELETS [Concomitant]
     Dosage: 12 U, PERIOPERATIVELY
     Route: 042
     Dates: start: 20060525, end: 20060525

REACTIONS (12)
  - FEAR [None]
  - ANHEDONIA [None]
  - RENAL INJURY [None]
  - EMOTIONAL DISTRESS [None]
  - INJURY [None]
  - ANXIETY [None]
  - RENAL FAILURE [None]
  - STRESS [None]
  - UNEVALUABLE EVENT [None]
  - RENAL IMPAIRMENT [None]
  - PAIN [None]
  - MENTAL DISORDER [None]
